FAERS Safety Report 19874357 (Version 2)
Quarter: 2021Q4

REPORT INFORMATION
  Report Type: Spontaneous
  Country: GR (occurrence: GR)
  Receive Date: 20210923
  Receipt Date: 20211119
  Transmission Date: 20220303
  Serious: Yes (Life-Threatening, Hospitalization, Disabling, Other)
  Sender: FDA-Public Use
  Company Number: GR-SA-2021SA120502

PATIENT
  Age: 70 Year
  Sex: Female

DRUGS (5)
  1. LEFLUNOMIDE [Suspect]
     Active Substance: LEFLUNOMIDE
     Indication: Rheumatoid arthritis
     Dosage: 20 MILLIGRAM, QD
     Route: 048
  2. METHOTREXATE [Suspect]
     Active Substance: METHOTREXATE
     Indication: Rheumatoid arthritis
     Dosage: UNK
  3. HYDROXYCHLOROQUINE SULFATE [Suspect]
     Active Substance: HYDROXYCHLOROQUINE SULFATE
     Indication: Rheumatoid arthritis
     Dosage: UNK
  4. DEXAMETHASONE [Concomitant]
     Active Substance: DEXAMETHASONE
     Indication: Immunosuppressant drug therapy
     Dosage: 8 MILLIGRAM, Q8H
     Route: 042
  5. DEXAMETHASONE [Concomitant]
     Active Substance: DEXAMETHASONE
     Dosage: 24 UNK
     Route: 042

REACTIONS (19)
  - Brain abscess [Recovered/Resolved]
  - Neurological decompensation [Recovered/Resolved]
  - Tuberculosis [Recovered/Resolved]
  - Infection [Recovered/Resolved]
  - Rebound effect [Recovered/Resolved]
  - Nocardiosis [Recovered/Resolved]
  - Central nervous system lesion [Recovered/Resolved]
  - Aphasia [Recovered/Resolved]
  - Cognitive disorder [Recovered/Resolved]
  - Hemiparesis [Recovered/Resolved]
  - Dyscalculia [Recovered/Resolved]
  - Pyrexia [Recovered/Resolved]
  - Brain oedema [Recovered/Resolved]
  - Speech disorder [Recovered/Resolved]
  - C-reactive protein increased [Recovered/Resolved]
  - Disorientation [Recovered/Resolved]
  - Condition aggravated [Recovered/Resolved]
  - Dizziness [Recovered/Resolved]
  - Headache [Recovered/Resolved]
